FAERS Safety Report 9117657 (Version 1)
Quarter: 2013Q1

REPORT INFORMATION
  Report Type: Report from Study
  Country: US (occurrence: US)
  Receive Date: 20130129
  Receipt Date: 20130129
  Transmission Date: 20140127
  Serious: No
  Sender: FDA-Public Use
  Company Number: US-ABBOTT-12P-163-0937326-00

PATIENT
  Age: 51 Year
  Sex: Female

DRUGS (4)
  1. HUMIRA 40 MG/0.8 ML PEN [Suspect]
     Indication: CROHN^S DISEASE
     Dates: start: 20120412
  2. ASACOL HD [Concomitant]
     Indication: PRODUCT USED FOR UNKNOWN INDICATION
  3. AMLODIPINE [Concomitant]
     Indication: BLOOD PRESSURE
  4. OMEPRAZOLE [Concomitant]
     Indication: GASTROINTESTINAL DISORDER

REACTIONS (4)
  - Chills [Recovering/Resolving]
  - Sinus headache [Recovering/Resolving]
  - Oral herpes [Recovering/Resolving]
  - Headache [Recovering/Resolving]
